FAERS Safety Report 25037468 (Version 1)
Quarter: 2025Q1

REPORT INFORMATION
  Report Type: Spontaneous
  Country: US (occurrence: US)
  Receive Date: 20250304
  Receipt Date: 20250304
  Transmission Date: 20250408
  Serious: No
  Sender: BIOGEN
  Company Number: US-BIOGEN-2024BI01295340

PATIENT
  Age: 55 Year
  Sex: Female

DRUGS (2)
  1. VUMERITY [Suspect]
     Active Substance: DIROXIMEL FUMARATE
     Indication: Multiple sclerosis
     Route: 050
     Dates: start: 20241223, end: 20241229
  2. VUMERITY [Suspect]
     Active Substance: DIROXIMEL FUMARATE
     Dosage: START DATE ALSO REPORTED AS 31-JAN-2025.
     Route: 050
     Dates: start: 20241230

REACTIONS (9)
  - Product dose omission in error [Recovered/Resolved]
  - Product dose omission issue [Recovered/Resolved]
  - Lip dry [Not Recovered/Not Resolved]
  - Chapped lips [Not Recovered/Not Resolved]
  - Drug intolerance [Unknown]
  - Oral hyperaesthesia [Recovered/Resolved]
  - Headache [Recovered/Resolved]
  - Diarrhoea [Not Recovered/Not Resolved]
  - Hot flush [Recovered/Resolved]

NARRATIVE: CASE EVENT DATE: 20241224
